FAERS Safety Report 6933137-3 (Version None)
Quarter: 2010Q3

REPORT INFORMATION
  Report Type: 
  Country: None (occurrence: None)
  Receive Date: 20100820
  Receipt Date: 20100811
  Transmission Date: 20110219
  Serious: Yes (Other)
  Sender: FDA-Public Use
  Company Number: US-AMGEN-QUU427557

PATIENT
  Sex: Female
  Weight: 69 kg

DRUGS (2)
  1. ENBREL [Suspect]
     Indication: RHEUMATOID ARTHRITIS
     Route: 065
     Dates: start: 19980101
  2. METHOTREXATE [Concomitant]
     Dates: start: 19940101

REACTIONS (12)
  - ADRENAL MASS [None]
  - AORTIC ARTERIOSCLEROSIS [None]
  - ATELECTASIS [None]
  - CHEST PAIN [None]
  - COUGH [None]
  - HIATUS HERNIA [None]
  - LUNG NEOPLASM [None]
  - PULMONARY CALCIFICATION [None]
  - PULMONARY GRANULOMA [None]
  - PYREXIA [None]
  - RENAL CYST [None]
  - THYROID NEOPLASM [None]
